FAERS Safety Report 8786425 (Version 1)
Quarter: 2012Q4

REPORT INFORMATION
  Report Type: 
  Country: US (occurrence: US)
  Receive Date: 20120914
  Receipt Date: 20120914
  Transmission Date: 20130627
  Serious: Yes (Other)
  Sender: FDA-Public Use
  Company Number: US-PFIZER INC-2012225236

PATIENT
  Age: 86 Year
  Sex: Female
  Weight: 56.69 kg

DRUGS (6)
  1. TIKOSYN [Suspect]
     Indication: ARRHYTHMIA
     Dosage: 0.5 mg, 2x/day
     Route: 048
  2. CARTIA XT [Concomitant]
     Dosage: 120 mg, 2x/day
  3. WARFARIN [Concomitant]
     Dosage: 3 mg, 1x/day
  4. ISOSORBIDE [Concomitant]
     Dosage: 60 mg, 1x/day
  5. POTASSIUM [Concomitant]
     Dosage: 20 mEq, UNK
  6. CARDIZEM [Concomitant]
     Dosage: 60 mg, UNK

REACTIONS (5)
  - Eye haemorrhage [Unknown]
  - Visual acuity reduced [Unknown]
  - International normalised ratio decreased [Unknown]
  - Heart rate abnormal [Unknown]
  - Herpes zoster [Not Recovered/Not Resolved]
